FAERS Safety Report 14267121 (Version 1)
Quarter: 2017Q4

REPORT INFORMATION
  Report Type: Spontaneous
  Country: US (occurrence: US)
  Receive Date: 20171211
  Receipt Date: 20171211
  Transmission Date: 20180321
  Serious: No
  Sender: FDA-Public Use
  Company Number: US-PFIZER INC-2017463720

PATIENT
  Age: 78 Year
  Sex: Male

DRUGS (1)
  1. IBRANCE [Suspect]
     Active Substance: PALBOCICLIB
     Dosage: 125 MG, UNK

REACTIONS (5)
  - Nausea [Unknown]
  - Hiccups [Unknown]
  - Fatigue [Unknown]
  - Product use issue [Unknown]
  - Venous occlusion [Unknown]
